FAERS Safety Report 7204433-X (Version None)
Quarter: 2010Q4

REPORT INFORMATION
  Report Type: 
  Country: None (occurrence: None)
  Receive Date: 20101230
  Receipt Date: 20101227
  Transmission Date: 20110411
  Serious: Yes (Hospitalization)
  Sender: FDA-Public Use
  Company Number: US-BRISTOL-MYERS SQUIBB COMPANY-15432727

PATIENT
  Age: 63 Year
  Sex: Female
  Weight: 90 kg

DRUGS (9)
  1. DASATINIB [Suspect]
     Indication: BREAST CANCER METASTATIC
     Dosage: INTERRUPTED ON 03DEC10
     Dates: start: 20101130
  2. FEMARA [Suspect]
     Indication: BREAST CANCER METASTATIC
     Dosage: INTERRUPTED ON 03DEC10
     Dates: start: 20101130
  3. AMBIEN [Concomitant]
     Indication: INSOMNIA
     Route: 048
     Dates: start: 20060101
  4. MS CONTIN [Concomitant]
     Indication: BONE PAIN
     Route: 048
     Dates: start: 20101101
  5. PERCOCET [Concomitant]
     Indication: BONE PAIN
     Dosage: 1 DF = 5-500 MG
     Route: 048
     Dates: start: 20101001
  6. EFFEXOR [Concomitant]
     Indication: DEPRESSION
     Route: 048
     Dates: start: 20070401
  7. PHENERGAN [Concomitant]
     Indication: NAUSEA
     Route: 048
     Dates: start: 20100101
  8. ZOFRAN [Concomitant]
     Indication: NAUSEA
     Route: 048
     Dates: start: 20101101
  9. OXYCONTIN [Concomitant]
     Indication: PAIN

REACTIONS (3)
  - DEHYDRATION [None]
  - HEADACHE [None]
  - NAUSEA [None]
